FAERS Safety Report 16668277 (Version 1)
Quarter: 2019Q3

REPORT INFORMATION
  Report Type: Spontaneous
  Country: FR (occurrence: FR)
  Receive Date: 20190805
  Receipt Date: 20190805
  Transmission Date: 20191004
  Serious: Yes (Hospitalization, Other)
  Sender: FDA-Public Use
  Company Number: FR-SCILEX PHARMACEUTICALS INC.-2019SCX00062

PATIENT
  Age: 2 Month
  Sex: Male
  Weight: 5 kg

DRUGS (1)
  1. LIDOCAINE. [Suspect]
     Active Substance: LIDOCAINE
     Indication: ANAESTHESIA
     Dosage: 100 MG, (5 ML; 20 MG/KG)
     Route: 065

REACTIONS (8)
  - Toxicity to various agents [Recovered/Resolved]
  - Eye movement disorder [Recovered/Resolved]
  - Coma [Recovered/Resolved]
  - Overdose [Recovered/Resolved]
  - Seizure [Recovered/Resolved]
  - Vomiting [Recovered/Resolved]
  - Respiratory distress [Recovered/Resolved]
  - Circulatory collapse [Recovered/Resolved]
